FAERS Safety Report 7414103-0 (Version None)
Quarter: 2011Q2

REPORT INFORMATION
  Report Type: 
  Country: None (occurrence: None)
  Receive Date: 20110411
  Receipt Date: 20110411
  Transmission Date: 20111010
  Serious: Yes (Death)
  Sender: FDA-Public Use
  Company Number: None

PATIENT
  Age: 57 Year
  Sex: Male
  Weight: 66.5 kg

DRUGS (11)
  1. TEMSIROLIMUS WYETH [Suspect]
     Indication: NEUROENDOCRINE TUMOUR
     Dosage: 25MG 4X MONTH IV
     Route: 042
     Dates: start: 20110207, end: 20110404
  2. TEMSIROLIMUS WYETH [Suspect]
     Indication: METASTASES TO PERITONEUM
     Dosage: 25MG 4X MONTH IV
     Route: 042
     Dates: start: 20110207, end: 20110404
  3. MEGACE [Concomitant]
  4. MAGNESIUM [Concomitant]
  5. VINORELBINE [Suspect]
     Indication: METASTASES TO PERITONEUM
     Dosage: 20MG/M2 2X MONTH IV
     Route: 042
     Dates: start: 20110207, end: 20110328
  6. VINORELBINE [Suspect]
     Indication: NEUROENDOCRINE TUMOUR
     Dosage: 20MG/M2 2X MONTH IV
     Route: 042
     Dates: start: 20110207, end: 20110328
  7. LISINOPRIL [Concomitant]
  8. ASPIRIN [Concomitant]
  9. LOVENOX [Concomitant]
  10. ATENOLOL [Concomitant]
  11. LEXAPRO [Concomitant]

REACTIONS (8)
  - GAIT DISTURBANCE [None]
  - FALL [None]
  - PULMONARY EMBOLISM [None]
  - OEDEMA PERIPHERAL [None]
  - BLOOD POTASSIUM DECREASED [None]
  - MYOCARDIAL INFARCTION [None]
  - DIARRHOEA [None]
  - DECREASED APPETITE [None]
